FAERS Safety Report 14291480 (Version 7)
Quarter: 2024Q3

REPORT INFORMATION
  Report Type: Spontaneous
  Country: GB (occurrence: GB)
  Receive Date: 20171215
  Receipt Date: 20240704
  Transmission Date: 20241017
  Serious: Yes (Death, Other)
  Sender: TEVA
  Company Number: GB-PFIZER INC-2017500670

PATIENT
  Age: 29 Year
  Sex: Female

DRUGS (3)
  1. DIAZEPAM [Suspect]
     Active Substance: DIAZEPAM
     Indication: Product used for unknown indication
     Dosage: UNK ()
     Route: 065
  2. PREGABALIN [Suspect]
     Active Substance: PREGABALIN
     Indication: Product used for unknown indication
     Dosage: UNK ()
     Route: 065
  3. SERTRALINE [Suspect]
     Active Substance: SERTRALINE HYDROCHLORIDE
     Indication: Product used for unknown indication
     Dosage: UNK ()
     Route: 065

REACTIONS (8)
  - Mental impairment [Fatal]
  - Somnolence [Fatal]
  - Sudden death [Fatal]
  - Borderline personality disorder [Fatal]
  - Hallucination, auditory [Fatal]
  - Suicidal behaviour [Fatal]
  - Mental disorder [Unknown]
  - Hypersomnia [Fatal]

NARRATIVE: CASE EVENT DATE: 20170917
